FAERS Safety Report 6845464-9 (Version None)
Quarter: 2010Q3

REPORT INFORMATION
  Report Type: 
  Country: None (occurrence: None)
  Receive Date: 20100715
  Receipt Date: 20070821
  Transmission Date: 20110219
  Serious: No
  Sender: FDA-Public Use
  Company Number: US-PFIZER INC-2007071025

PATIENT
  Sex: Female
  Weight: 69.9 kg

DRUGS (4)
  1. CHANTIX [Suspect]
     Indication: SMOKING CESSATION THERAPY
     Route: 048
     Dates: start: 20070812
  2. ATENOLOL [Concomitant]
     Indication: HYPERTENSION
  3. CLONAZEPAM [Concomitant]
     Indication: PANIC ATTACK
  4. AMITRIPTYLINE HYDROCHLORIDE [Concomitant]
     Indication: IRRITABLE BOWEL SYNDROME

REACTIONS (3)
  - MALAISE [None]
  - NAUSEA [None]
  - WEIGHT INCREASED [None]
